FAERS Safety Report 11975826 (Version 1)
Quarter: 2016Q1

REPORT INFORMATION
  Report Type: Spontaneous
  Country: US (occurrence: US)
  Receive Date: 20160129
  Receipt Date: 20160129
  Transmission Date: 20160526
  Serious: Yes (Other)
  Sender: FDA-Public Use
  Company Number: US-ROCHE-1702400

PATIENT
  Sex: Male

DRUGS (5)
  1. ATORVASTATIN [Concomitant]
     Active Substance: ATORVASTATIN
     Route: 065
  2. METOPROLOL. [Concomitant]
     Active Substance: METOPROLOL
     Route: 065
  3. ELIQUIS [Concomitant]
     Active Substance: APIXABAN
     Route: 065
  4. AVASTIN [Suspect]
     Active Substance: BEVACIZUMAB
     Indication: LUNG NEOPLASM MALIGNANT
     Dosage: 5MG/KG
     Route: 065
  5. PROTONIX (UNITED STATES) [Concomitant]
     Route: 065

REACTIONS (6)
  - Dry eye [Unknown]
  - Atrial fibrillation [Unknown]
  - Rhinorrhoea [Unknown]
  - Headache [Unknown]
  - Dry skin [Unknown]
  - Epistaxis [Unknown]
